FAERS Safety Report 16227701 (Version 8)
Quarter: 2022Q1

REPORT INFORMATION
  Report Type: Spontaneous
  Country: US (occurrence: US)
  Receive Date: 20190423
  Receipt Date: 20220121
  Transmission Date: 20220423
  Serious: Yes (Other)
  Sender: FDA-Public Use
  Company Number: US-PFIZER INC-2019036206

PATIENT
  Age: 64 Year
  Sex: Male
  Weight: 92.971 kg

DRUGS (2)
  1. LATANOPROST [Suspect]
     Active Substance: LATANOPROST
     Indication: Open angle glaucoma
     Dosage: 2 GTT, 1X/DAY
     Route: 047
     Dates: start: 2011, end: 2011
  2. LATANOPROST [Suspect]
     Active Substance: LATANOPROST
     Dosage: 2 GTT, DAILY (ONE DROP EVERY NIGHT AT BEDTIME IN BOTH EYES)
     Route: 047

REACTIONS (9)
  - Drug hypersensitivity [Recovered/Resolved]
  - Ocular hyperaemia [Unknown]
  - Eye irritation [Recovered/Resolved]
  - Intraocular pressure increased [Unknown]
  - Eye pain [Recovered/Resolved]
  - Eye pruritus [Recovered/Resolved]
  - Lacrimation increased [Recovered/Resolved]
  - Dry eye [Recovered/Resolved]
  - Foreign body sensation in eyes [Recovered/Resolved]

NARRATIVE: CASE EVENT DATE: 20110101
